FAERS Safety Report 6071393-7 (Version None)
Quarter: 2009Q1

REPORT INFORMATION
  Report Type: 
  Country: None (occurrence: None)
  Receive Date: 20090204
  Receipt Date: 20081217
  Transmission Date: 20090719
  Serious: Yes (Other)
  Sender: FDA-Public Use
  Company Number: 2008AP003588

PATIENT
  Age: 75 Year
  Sex: Female

DRUGS (9)
  1. CYCLOSPORINE [Suspect]
     Dosage: 75 MG;BID;, 25 MG;QD;PO, 75 MG;QD;PO, 100 MG;QD;PO
     Route: 048
  2. VITAMINS [Concomitant]
  3. ACETYLSALICYLIC ACID [Concomitant]
  4. NIFEDIPINE [Concomitant]
  5. CLONIDINE HCL [Concomitant]
  6. ATORVASTATIN [Concomitant]
  7. METOPROLOL TARTRATE [Concomitant]
  8. CYANOCOBALAMIN [Concomitant]
  9. SEVELAMER HYDROCHLORIDE [Concomitant]

REACTIONS (10)
  - ABDOMINAL DISCOMFORT [None]
  - ANAEMIA [None]
  - CONDITION AGGRAVATED [None]
  - DIALYSIS [None]
  - DRUG INTOLERANCE [None]
  - HYPERTENSION [None]
  - MUSCLE SPASMS [None]
  - NO THERAPEUTIC RESPONSE [None]
  - RENIN DECREASED [None]
  - VASCULAR RESISTANCE SYSTEMIC INCREASED [None]
